FAERS Safety Report 22070940 (Version 1)
Quarter: 2023Q1

REPORT INFORMATION
  Report Type: Spontaneous
  Country: FR (occurrence: FR)
  Receive Date: 20230307
  Receipt Date: 20230307
  Transmission Date: 20230418
  Serious: Yes (Life-Threatening)
  Sender: FDA-Public Use
  Company Number: None

PATIENT
  Age: 23 Year
  Sex: Male
  Weight: 59 kg

DRUGS (4)
  1. ADALIMUMAB [Suspect]
     Active Substance: ADALIMUMAB
     Indication: Crohn^s disease
     Dosage: 40 MILLIGRAM, BIWEEKLY
     Route: 058
     Dates: start: 20190206
  2. BEZAFIBRATE [Suspect]
     Active Substance: BEZAFIBRATE
     Indication: Cholangitis sclerosing
     Dosage: 400 MILLIGRAM, QD
     Route: 048
     Dates: start: 20200929
  3. AZATHIOPRINE SODIUM [Suspect]
     Active Substance: AZATHIOPRINE SODIUM
     Indication: Crohn^s disease
     Dosage: 1 DOSAGE FORM, QD
     Route: 048
     Dates: start: 20180127
  4. URSODIOL [Suspect]
     Active Substance: URSODIOL
     Indication: Cholangitis sclerosing
     Dosage: 1250 MILLIGRAM, QD
     Route: 048
     Dates: start: 20171128

REACTIONS (1)
  - Primary mediastinal large B-cell lymphoma stage IV [Not Recovered/Not Resolved]

NARRATIVE: CASE EVENT DATE: 20221209
